FAERS Safety Report 8916454 (Version 1)
Quarter: 2012Q4

REPORT INFORMATION
  Report Type: 
  Country: FR (occurrence: FR)
  Receive Date: 20121120
  Receipt Date: 20121120
  Transmission Date: 20130627
  Serious: Yes (Hospitalization)
  Sender: FDA-Public Use
  Company Number: FR-PFIZER INC-IDR-00416

PATIENT
  Age: 59 Year
  Sex: Female

DRUGS (8)
  1. AVLOCARDYL [Suspect]
     Dosage: 160 mg, UNK
     Route: 048
     Dates: end: 20100529
  2. FARMORUBICINE [Suspect]
     Dosage: ONE SINGLE DOSE
     Route: 042
     Dates: start: 20100526, end: 20100526
  3. ALDACTONE [Concomitant]
     Dosage: 75 mg, 1x/day
     Route: 048
  4. LASILIX [Concomitant]
     Dosage: 40 mg, 1x/day
     Route: 048
  5. ULCAR [Concomitant]
     Route: 048
  6. DIAMICRON [Concomitant]
     Route: 048
  7. ACTOS [Concomitant]
     Route: 048
  8. DIFFU K [Concomitant]
     Route: 048

REACTIONS (1)
  - Torsade de pointes [Recovered/Resolved with Sequelae]
